FAERS Safety Report 16515718 (Version 2)
Quarter: 2019Q3

REPORT INFORMATION
  Report Type: Spontaneous
  Country: JP (occurrence: JP)
  Receive Date: 20190702
  Receipt Date: 20190702
  Transmission Date: 20191004
  Serious: Yes (Death, Life-Threatening, Hospitalization, Other)
  Sender: FDA-Public Use
  Company Number: PHHY2019JP149762

PATIENT
  Age: 72 Year
  Sex: Male

DRUGS (4)
  1. METHYLPREDNISOLONE. [Suspect]
     Active Substance: METHYLPREDNISOLONE
     Dosage: 1 G, QD (HIGH DOSE PULSE STEROID THERAPY)
     Route: 065
  2. PREDNISOLONE. [Suspect]
     Active Substance: PREDNISOLONE
     Indication: INTERSTITIAL LUNG DISEASE
     Dosage: 60 MG, (MAINTENANCE DOSE OF PREDNISOLONE)
     Route: 065
  3. METHYLPREDNISOLONE. [Suspect]
     Active Substance: METHYLPREDNISOLONE
     Indication: INTERSTITIAL LUNG DISEASE
     Dosage: 1 G, QD (STARTED HIGH DOSE PULSE STEROID THERAPY AGAIN)
     Route: 065
  4. PIPERACILLIN/TAZOBACTAM [Concomitant]
     Active Substance: PIPERACILLIN SODIUM\TAZOBACTAM SODIUM
     Indication: PNEUMONIA
     Dosage: 2.25 G
     Route: 065

REACTIONS (5)
  - Meningitis [Fatal]
  - Septic shock [Fatal]
  - Fungal endocarditis [Fatal]
  - Acute respiratory failure [Fatal]
  - Cryptococcosis [Fatal]
